FAERS Safety Report 5707755-4 (Version None)
Quarter: 2008Q2

REPORT INFORMATION
  Report Type: 
  Country: None (occurrence: None)
  Receive Date: 20080417
  Receipt Date: 20080408
  Transmission Date: 20081010
  Serious: Yes (Life-Threatening, Hospitalization)
  Sender: FDA-Public Use
  Company Number: GB-RANBAXY-2008RR-14294

PATIENT

DRUGS (8)
  1. LISINOPRIL [Suspect]
     Indication: HYPERTENSION
     Dosage: 10 MG, UNK
     Route: 048
     Dates: start: 20070801, end: 20080318
  2. NEFOPAM [Suspect]
     Indication: ABDOMINAL PAIN
     Dosage: UNK
     Route: 048
     Dates: start: 20080301, end: 20080318
  3. CYCLIZINE [Concomitant]
     Indication: NAUSEA
     Dosage: 50 MG, PRN
     Route: 058
     Dates: start: 20080214, end: 20080303
  4. ENOXAPARIN SODIUM [Concomitant]
     Dosage: 40 MG, QD
     Route: 058
     Dates: start: 20080214, end: 20080303
  5. METOCLOPRAMIDE [Concomitant]
     Dosage: 10 MG, UNK
     Route: 042
     Dates: start: 20080308
  6. MORPHINE [Concomitant]
     Dosage: UNK
     Dates: end: 20080303
  7. SENNA [Concomitant]
     Dosage: 2 DF, QD
     Route: 048
     Dates: start: 20080214
  8. VISCOTEARS [Concomitant]
     Dosage: UNK
     Dates: start: 20051101

REACTIONS (3)
  - ANGIOEDEMA [None]
  - FACE OEDEMA [None]
  - URTICARIA [None]
